FAERS Safety Report 25892112 (Version 1)
Quarter: 2025Q4

REPORT INFORMATION
  Report Type: Spontaneous
  Country: JP (occurrence: JP)
  Receive Date: 20251007
  Receipt Date: 20251007
  Transmission Date: 20260117
  Serious: Yes (Hospitalization, Other)
  Sender: AMGEN
  Company Number: JP-AMGEN-JPNSP2025195518

PATIENT

DRUGS (2)
  1. BEVACIZUMAB [Suspect]
     Active Substance: BEVACIZUMAB
     Indication: Hepatocellular carcinoma
     Dosage: 15 MILLIGRAM/KILOGRAM, Q3WK
     Route: 040
  2. ATEZOLIZUMAB [Concomitant]
     Active Substance: ATEZOLIZUMAB
     Indication: Hepatocellular carcinoma
     Dosage: 1200 MILLIGRAM, Q3WK
     Route: 040

REACTIONS (16)
  - Hepatocellular carcinoma [Unknown]
  - Adverse event [Unknown]
  - Adrenal insufficiency [Unknown]
  - Gastrointestinal haemorrhage [Unknown]
  - Tumour rupture [Unknown]
  - Interstitial lung disease [Unknown]
  - Hypothyroidism [Unknown]
  - Type 1 diabetes mellitus [Unknown]
  - Ascites [Unknown]
  - Hepatic function abnormal [Unknown]
  - Proteinuria [Unknown]
  - Hypertension [Unknown]
  - Pyrexia [Unknown]
  - Decreased appetite [Unknown]
  - Therapy partial responder [Unknown]
  - Off label use [Unknown]
